FAERS Safety Report 25051079 (Version 1)
Quarter: 2025Q1

REPORT INFORMATION
  Report Type: Report from Study
  Country: CO (occurrence: CO)
  Receive Date: 20250307
  Receipt Date: 20250307
  Transmission Date: 20250409
  Serious: Yes (Death, Life-Threatening)
  Sender: AMGEN
  Company Number: CO-AMGEN-COLSL2025044755

PATIENT
  Age: 75 Year
  Sex: Male

DRUGS (1)
  1. XGEVA [Suspect]
     Active Substance: DENOSUMAB
     Indication: Prophylaxis
     Dosage: 120 MILLIGRAM, QMO
     Route: 058
     Dates: start: 20230630, end: 20241213

REACTIONS (1)
  - Therapy non-responder [Fatal]
